FAERS Safety Report 16447289 (Version 3)
Quarter: 2020Q1

REPORT INFORMATION
  Report Type: Report from Study
  Country: None (occurrence: RO)
  Receive Date: 20190618
  Receipt Date: 20200123
  Transmission Date: 20200409
  Serious: Yes (Hospitalization, Disabling, Other)
  Sender: FDA-Public Use
  Company Number: RO-ABBVIE-19K-135-2819908-00

PATIENT
  Age: 62 Year
  Sex: Female

DRUGS (28)
  1. HUMIRA [Suspect]
     Active Substance: ADALIMUMAB
     Route: 058
     Dates: start: 201810, end: 201902
  2. DIAPREL [Concomitant]
     Active Substance: GLICLAZIDE
     Indication: DIABETES MELLITUS
     Route: 048
  3. METHOTREXATE. [Suspect]
     Active Substance: METHOTREXATE
     Indication: PSORIASIS
     Dosage: UNKNOWN
     Route: 051
  4. VIMOVO [Suspect]
     Active Substance: ESOMEPRAZOLE MAGNESIUM\NAPROXEN
     Indication: ARTHRALGIA
     Dosage: 10 DAYS PER MONTH ALTERNATED WITH TADOR
     Route: 048
  5. SIOFOR [Concomitant]
     Active Substance: METFORMIN HYDROCHLORIDE
     Indication: DIABETES MELLITUS
     Dosage: UNKNOWN
     Route: 048
     Dates: end: 201906
  6. VENTOLIN [Concomitant]
     Active Substance: ALBUTEROL SULFATE
     Indication: ASTHMA
     Dosage: AS NEEDED
     Route: 055
  7. INDAPAMIDE. [Concomitant]
     Active Substance: INDAPAMIDE
     Indication: PRODUCT USED FOR UNKNOWN INDICATION
  8. MILGAMMA N [Suspect]
     Active Substance: BENFOTIAMINE\CYANOCOBALAMIN\PYRIDOXINE HYDROCHLORIDE
     Indication: HYPOAESTHESIA
     Route: 048
  9. ALGOCALMIN [Suspect]
     Active Substance: METAMIZOLE SODIUM
     Indication: URINARY TRACT INFECTION
     Route: 048
  10. GLUCOPHAGE [Concomitant]
     Active Substance: METFORMIN HYDROCHLORIDE
     Indication: DIABETES MELLITUS
     Route: 048
     Dates: start: 201906
  11. TOLURA [Concomitant]
     Active Substance: TELMISARTAN
     Indication: HYPERTENSION
     Route: 048
  12. INDAPAMIDE. [Concomitant]
     Active Substance: INDAPAMIDE
     Indication: HYPERTENSION
     Route: 048
  13. SPASMOMEN [Concomitant]
     Active Substance: OTILONIUM BROMIDE
     Indication: PRODUCT USED FOR UNKNOWN INDICATION
     Route: 048
  14. TADOR [Suspect]
     Active Substance: DEXKETOPROFEN
     Indication: ARTHRALGIA
     Dosage: 10 DAYS PER MONTH ALTERNATED WITH VIMOVO
     Route: 048
     Dates: start: 2019
  15. TRAMADOL. [Suspect]
     Active Substance: TRAMADOL
     Indication: ARTHRALGIA
     Dosage: UNKNOWN
     Route: 048
  16. SERETIDE [Concomitant]
     Active Substance: FLUTICASONE PROPIONATE\SALMETEROL XINAFOATE
     Indication: PRODUCT USED FOR UNKNOWN INDICATION
  17. HUMIRA [Suspect]
     Active Substance: ADALIMUMAB
     Indication: PSORIASIS
     Route: 058
     Dates: start: 20111215, end: 201810
  18. AMLODIPINE [Concomitant]
     Active Substance: AMLODIPINE BESYLATE
     Indication: HYPERTENSION
     Route: 048
  19. TEOTARD [Concomitant]
     Active Substance: THEOPHYLLINE ANHYDROUS
     Indication: PRODUCT USED FOR UNKNOWN INDICATION
  20. TRAMADOL. [Suspect]
     Active Substance: TRAMADOL
     Route: 065
  21. TEOTARD [Concomitant]
     Active Substance: THEOPHYLLINE ANHYDROUS
     Indication: ASTHMA
     Route: 048
  22. SERETIDE [Concomitant]
     Active Substance: FLUTICASONE PROPIONATE\SALMETEROL XINAFOATE
     Indication: ASTHMA
     Dosage: 50/500
     Route: 055
  23. NORVASC [Concomitant]
     Active Substance: AMLODIPINE BESYLATE
     Indication: PRODUCT USED FOR UNKNOWN INDICATION
  24. TOLURA [Concomitant]
     Active Substance: TELMISARTAN
     Indication: PRODUCT USED FOR UNKNOWN INDICATION
  25. HUMIRA [Suspect]
     Active Substance: ADALIMUMAB
     Route: 058
     Dates: start: 201902
  26. MILGAMMA N [Suspect]
     Active Substance: BENFOTIAMINE\CYANOCOBALAMIN\PYRIDOXINE HYDROCHLORIDE
     Indication: MUSCULOSKELETAL STIFFNESS
     Route: 065
  27. THIOSSEN [Suspect]
     Active Substance: .ALPHA.-LIPOIC ACID
     Indication: ARTHRALGIA
     Dosage: UNKNOWN
     Route: 051
     Dates: start: 2018
  28. MYDOCALM (TOLPERISONE HYDROCHLORIDE) [Suspect]
     Active Substance: TOLPERISONE HYDROCHLORIDE
     Indication: PRODUCT USED FOR UNKNOWN INDICATION
     Route: 048

REACTIONS (30)
  - Musculoskeletal stiffness [Unknown]
  - Intervertebral disc protrusion [Recovered/Resolved]
  - Mobility decreased [Not Recovered/Not Resolved]
  - Pigmentation disorder [Not Recovered/Not Resolved]
  - Anaphylactic shock [Unknown]
  - Pneumonia [Recovered/Resolved]
  - Weight increased [Not Recovered/Not Resolved]
  - Peripheral swelling [Not Recovered/Not Resolved]
  - Pneumonia [Recovered/Resolved]
  - Back pain [Not Recovered/Not Resolved]
  - Renal colic [Not Recovered/Not Resolved]
  - Pneumonia [Recovered/Resolved]
  - Blood glucose fluctuation [Not Recovered/Not Resolved]
  - Dizziness [Unknown]
  - White blood cells urine positive [Not Recovered/Not Resolved]
  - Pain in extremity [Not Recovered/Not Resolved]
  - Urinary tract infection [Not Recovered/Not Resolved]
  - Spinal disorder [Not Recovered/Not Resolved]
  - Hepatic pain [Recovered/Resolved]
  - Drug hypersensitivity [Unknown]
  - Appetite disorder [Recovered/Resolved]
  - Nasopharyngitis [Recovered/Resolved]
  - Psoriasis [Not Recovered/Not Resolved]
  - Drug hypersensitivity [Recovered/Resolved]
  - Drug dependence [Unknown]
  - Osteoarthritis [Not Recovered/Not Resolved]
  - Varicophlebitis [Not Recovered/Not Resolved]
  - Product use complaint [Unknown]
  - Intervertebral disc protrusion [Not Recovered/Not Resolved]
  - Blood glucose increased [Unknown]

NARRATIVE: CASE EVENT DATE: 2018
